FAERS Safety Report 12323398 (Version 2)
Quarter: 2016Q2

REPORT INFORMATION
  Report Type: Spontaneous
  Country: DE (occurrence: DE)
  Receive Date: 20160502
  Receipt Date: 20160517
  Transmission Date: 20160815
  Serious: Yes (Hospitalization, Other)
  Sender: FDA-Public Use
  Company Number: DE-ELI_LILLY_AND_COMPANY-DE201604006207

PATIENT
  Age: 74 Year
  Sex: Female
  Weight: 55 kg

DRUGS (2)
  1. FORSTEO [Suspect]
     Active Substance: TERIPARATIDE
     Indication: PRODUCT USED FOR UNKNOWN INDICATION
     Dosage: UNK UNK, UNKNOWN
     Route: 058
     Dates: start: 20151005
  2. LYRICA [Concomitant]
     Active Substance: PREGABALIN
     Dosage: UNK, QD

REACTIONS (6)
  - Vomiting [Recovered/Resolved]
  - Nausea [Recovered/Resolved]
  - Inflammation [Recovering/Resolving]
  - Weight decreased [Not Recovered/Not Resolved]
  - Pneumonia [Unknown]
  - Wound dehiscence [Recovered/Resolved]

NARRATIVE: CASE EVENT DATE: 201510
